FAERS Safety Report 6453668-2 (Version None)
Quarter: 2009Q4

REPORT INFORMATION
  Report Type: 
  Country: None (occurrence: None)
  Receive Date: 20091124
  Receipt Date: 20091112
  Transmission Date: 20100525
  Serious: Yes (Other)
  Sender: FDA-Public Use
  Company Number: PHEH2008US07502

PATIENT
  Sex: Male

DRUGS (1)
  1. ZOMETA [Suspect]

REACTIONS (10)
  - ANHEDONIA [None]
  - ANXIETY [None]
  - COMPRESSION FRACTURE [None]
  - DISABILITY [None]
  - EMPHYSEMA [None]
  - HIP ARTHROPLASTY [None]
  - INJURY [None]
  - LYMPHADENOPATHY [None]
  - OSTEONECROSIS [None]
  - PAIN [None]
